FAERS Safety Report 13789785 (Version 2)
Quarter: 2017Q3

REPORT INFORMATION
  Report Type: Spontaneous
  Country: TR (occurrence: TR)
  Receive Date: 20170725
  Receipt Date: 20170828
  Transmission Date: 20171127
  Serious: Yes (Other)
  Sender: FDA-Public Use
  Company Number: ALCN2017TR004480

PATIENT
  Sex: Female

DRUGS (1)
  1. VIGAMOX [Suspect]
     Active Substance: MOXIFLOXACIN HYDROCHLORIDE
     Indication: PRODUCT USED FOR UNKNOWN INDICATION
     Dosage: 1 GTT, UNK
     Route: 047

REACTIONS (7)
  - Conjunctival haemorrhage [Unknown]
  - Conjunctival discolouration [Unknown]
  - Product packaging issue [Unknown]
  - Dry eye [Unknown]
  - Eye swelling [Not Recovered/Not Resolved]
  - Visual impairment [Unknown]
  - Product colour issue [Unknown]
